FAERS Safety Report 23461526 (Version 3)
Quarter: 2024Q1

REPORT INFORMATION
  Report Type: Spontaneous
  Country: US (occurrence: None)
  Receive Date: 20240131
  Receipt Date: 20240315
  Transmission Date: 20240410
  Serious: No
  Sender: FDA-Public Use
  Company Number: 2024A018992

PATIENT
  Age: 81 Year
  Sex: Male

DRUGS (1)
  1. FASENRA [Suspect]
     Active Substance: BENRALIZUMAB
     Indication: Asthma
     Dosage: 30.0MG/DL UNKNOWN
     Route: 058
     Dates: start: 20210521

REACTIONS (2)
  - Tryptase increased [Unknown]
  - Arthropod sting [Unknown]
